FAERS Safety Report 6086916-1 (Version None)
Quarter: 2009Q1

REPORT INFORMATION
  Report Type: 
  Country: None (occurrence: None)
  Receive Date: 20090223
  Receipt Date: 20090211
  Transmission Date: 20090719
  Serious: Yes (Other)
  Sender: FDA-Public Use
  Company Number: US-ROCHE-601068

PATIENT
  Sex: Female
  Weight: 58.1 kg

DRUGS (6)
  1. CAPECITABINE [Suspect]
     Dosage: RECEIVED IN AM AND IN PM
     Route: 048
     Dates: start: 20080728
  2. CALCIUM [Concomitant]
  3. PRAVASTATIN [Concomitant]
  4. SYNTHROID [Concomitant]
  5. TRILEPTAL [Concomitant]
  6. MIRAPEX [Concomitant]

REACTIONS (3)
  - DEAFNESS UNILATERAL [None]
  - NEOPLASM PROGRESSION [None]
  - TUMOUR MARKER INCREASED [None]
